FAERS Safety Report 9204628 (Version 1)
Quarter: 2013Q2

REPORT INFORMATION
  Report Type: Spontaneous
  Country: US (occurrence: None)
  Receive Date: 20130401
  Receipt Date: 20130401
  Transmission Date: 20140414
  Serious: No
  Sender: FDA-Public Use
  Company Number: None

PATIENT
  Sex: Female

DRUGS (1)
  1. BANZEL [Suspect]
     Indication: PETIT MAL EPILEPSY
     Dosage: 200 MG  ONE DAILY X7 DAYS PO
     Route: 048
     Dates: start: 201303

REACTIONS (1)
  - Unevaluable event [None]
